FAERS Safety Report 13968237 (Version 1)
Quarter: 2017Q3

REPORT INFORMATION
  Report Type: Spontaneous
  Country: US (occurrence: US)
  Receive Date: 20170914
  Receipt Date: 20170914
  Transmission Date: 20171128
  Serious: Yes (Hospitalization)
  Sender: FDA-Public Use
  Company Number: US-JNJFOC-20170911009

PATIENT
  Age: 56 Year
  Sex: Male
  Weight: 108 kg

DRUGS (2)
  1. XARELTO [Suspect]
     Active Substance: RIVAROXABAN
     Indication: DEEP VEIN THROMBOSIS
     Route: 048
     Dates: start: 201708, end: 20170907
  2. XARELTO [Suspect]
     Active Substance: RIVAROXABAN
     Indication: DEEP VEIN THROMBOSIS
     Dosage: 20 MG ONCE A DAY OR 15 MG TWICE A DAY
     Route: 048
     Dates: start: 20170808, end: 201708

REACTIONS (1)
  - Wound infection [Unknown]

NARRATIVE: CASE EVENT DATE: 20170907
